FAERS Safety Report 24546433 (Version 1)
Quarter: 2024Q4

REPORT INFORMATION
  Report Type: Spontaneous
  Country: US (occurrence: US)
  Receive Date: 20241024
  Receipt Date: 20241024
  Transmission Date: 20250115
  Serious: Yes (Other)
  Sender: ALKERMES
  Company Number: US-ALKERMES INC.-ALK-2024-002697

PATIENT
  Sex: Female
  Weight: 47.619 kg

DRUGS (1)
  1. VIVITROL [Suspect]
     Active Substance: NALTREXONE
     Indication: Alcoholism
     Dosage: 380 MILLIGRAM, QMO
     Route: 030
     Dates: start: 2023

REACTIONS (3)
  - Syncope [Recovered/Resolved]
  - Emotional disorder [Unknown]
  - Alcoholism [Unknown]

NARRATIVE: CASE EVENT DATE: 20240101
